FAERS Safety Report 6837935-6 (Version None)
Quarter: 2010Q3

REPORT INFORMATION
  Report Type: 
  Country: None (occurrence: None)
  Receive Date: 20100713
  Receipt Date: 20070525
  Transmission Date: 20110219
  Serious: Yes (Hospitalization)
  Sender: FDA-Public Use
  Company Number: US-PFIZER INC-2007043642

PATIENT
  Sex: Female
  Weight: 113.4 kg

DRUGS (1)
  1. CHANTIX [Suspect]
     Indication: EX-TOBACCO USER
     Dates: start: 20070501, end: 20070501

REACTIONS (5)
  - CONSTIPATION [None]
  - FLATULENCE [None]
  - GASTRIC DISORDER [None]
  - MALAISE [None]
  - NAUSEA [None]
